FAERS Safety Report 22200239 (Version 1)
Quarter: 2023Q2

REPORT INFORMATION
  Report Type: Spontaneous
  Country: US (occurrence: US)
  Receive Date: 20230412
  Receipt Date: 20230412
  Transmission Date: 20230721
  Serious: Yes (Hospitalization)
  Sender: FDA-Public Use
  Company Number: US-Accord-265019

PATIENT
  Sex: Male

DRUGS (1)
  1. TEMOZOLOMIDE [Suspect]
     Active Substance: TEMOZOLOMIDE
     Indication: Glioblastoma
     Dosage: 450MG ORALLY DAILY X 5 DAYS OF A 28 DAY CYCLE (ON 5 DAYS AND OFF 23 DAYS-28 DAY CYCLE)
     Route: 048

REACTIONS (1)
  - Neutropenia [Unknown]
